FAERS Safety Report 12861220 (Version 11)
Quarter: 2018Q1

REPORT INFORMATION
  Report Type: Report from Study
  Country: GB (occurrence: GB)
  Receive Date: 20161019
  Receipt Date: 20180205
  Transmission Date: 20180508
  Serious: Yes (Other)
  Sender: FDA-Public Use
  Company Number: GB-BRISTOL-MYERS SQUIBB COMPANY-BMS-2016-066846

PATIENT
  Sex: Female

DRUGS (2)
  1. ABATACEPT [Suspect]
     Active Substance: ABATACEPT
     Indication: RHEUMATOID ARTHRITIS
     Dosage: 125 MG, QWK
     Route: 058
     Dates: start: 20160706
  2. METHOTREXATE. [Concomitant]
     Active Substance: METHOTREXATE
     Indication: PRODUCT USED FOR UNKNOWN INDICATION
     Route: 065

REACTIONS (11)
  - General physical health deterioration [Unknown]
  - Pain in extremity [Unknown]
  - Product storage error [Unknown]
  - Bronchitis [Unknown]
  - Adverse event [Unknown]
  - Influenza [Unknown]
  - Malaise [Unknown]
  - Influenza like illness [Unknown]
  - Back pain [Unknown]
  - Device malfunction [Unknown]
  - Arthralgia [Unknown]
